FAERS Safety Report 5492014-8 (Version None)
Quarter: 2007Q4

REPORT INFORMATION
  Report Type: 
  Country: None (occurrence: None)
  Receive Date: 20071022
  Receipt Date: 20071016
  Transmission Date: 20080405
  Serious: Yes (Hospitalization, Disabling)
  Sender: FDA-Public Use
  Company Number: D0054841A

PATIENT
  Sex: Female

DRUGS (3)
  1. ZINACEF [Suspect]
     Dosage: 1.5G UNKNOWN
     Route: 042
     Dates: start: 19970101, end: 19970101
  2. HAES [Suspect]
     Route: 042
     Dates: start: 19970101, end: 19970101
  3. LIQUAEMIN INJ [Suspect]
     Route: 042
     Dates: start: 19970101, end: 19970101

REACTIONS (4)
  - FINGER AMPUTATION [None]
  - INFUSION SITE EXTRAVASATION [None]
  - MEDICATION ERROR [None]
  - OEDEMA PERIPHERAL [None]
